FAERS Safety Report 7115414-9 (Version None)
Quarter: 2010Q4

REPORT INFORMATION
  Report Type: 
  Country: None (occurrence: None)
  Receive Date: 20101122
  Receipt Date: 20101111
  Transmission Date: 20110411
  Serious: Yes (Hospitalization, Other)
  Sender: FDA-Public Use
  Company Number: US-JNJFOC-20100900434

PATIENT
  Sex: Female
  Weight: 54.43 kg

DRUGS (2)
  1. ORTHO EVRA [Suspect]
     Indication: HAEMORRHAGE
     Route: 062
  2. ORTHO TRI-CYCLEN [Suspect]
     Indication: CONTRACEPTION
     Route: 048

REACTIONS (9)
  - CHEST DISCOMFORT [None]
  - CHEST PAIN [None]
  - DEEP VEIN THROMBOSIS [None]
  - DEPRESSION [None]
  - DYSPNOEA [None]
  - HEART RATE IRREGULAR [None]
  - OFF LABEL USE [None]
  - TREMOR [None]
  - WEIGHT DECREASED [None]
